FAERS Safety Report 17143359 (Version 1)
Quarter: 2019Q4

REPORT INFORMATION
  Report Type: Report from Study
  Country: FR (occurrence: FR)
  Receive Date: 20191212
  Receipt Date: 20191212
  Transmission Date: 20200122
  Serious: Yes (Hospitalization)
  Sender: FDA-Public Use
  Company Number: FR-SA-2019SA251263

PATIENT
  Age: 78 Year
  Sex: Male
  Weight: 62 kg

DRUGS (6)
  1. CABAZITAXEL [Suspect]
     Active Substance: CABAZITAXEL
     Indication: PROSTATE CANCER METASTATIC
     Dosage: 16 MG/M2, QCY
     Route: 042
     Dates: start: 20190822, end: 20190822
  2. LERCAN [Concomitant]
     Active Substance: LERCANIDIPINE
     Indication: HYPERTENSION
     Dosage: 20 MG, QD, STOP DATE: 03-SEP-2019
     Route: 048
  3. PREDNISONE. [Suspect]
     Active Substance: PREDNISONE
     Indication: PROSTATE CANCER METASTATIC
     Dosage: 10 MG, QD
     Route: 048
  4. BROMAZEPAM ISOMED [Concomitant]
     Indication: ANXIETY
     Dosage: 3 MG, QD
     Route: 048
  5. CABAZITAXEL [Suspect]
     Active Substance: CABAZITAXEL
     Dosage: 16 MG/M2, QCY
     Route: 042
     Dates: start: 20190711, end: 20190711
  6. ATORVASTATINE [ATORVASTATIN] [Concomitant]
     Active Substance: ATORVASTATIN
     Indication: HYPERCHOLESTEROLAEMIA
     Dosage: 20 MG, QD
     Route: 048

REACTIONS (3)
  - Malnutrition [Recovered/Resolved]
  - Dehydration [Recovered/Resolved]
  - Diarrhoea [Recovered/Resolved]

NARRATIVE: CASE EVENT DATE: 20190903
